FAERS Safety Report 4782998-5 (Version None)
Quarter: 2005Q3

REPORT INFORMATION
  Report Type: 
  Country: None (occurrence: None)
  Receive Date: 20050927
  Receipt Date: 20050915
  Transmission Date: 20060218
  Serious: Yes (Death)
  Sender: FDA-Public Use
  Company Number: 2005BI017341

PATIENT
  Age: 48 Year
  Sex: Male
  Weight: 66.1344 kg

DRUGS (27)
  1. AVONEX [Suspect]
     Indication: AMYOTROPHIC LATERAL SCLEROSIS
     Dosage: 30 UG; QW; IM
     Route: 030
     Dates: start: 20031214
  2. ACTIVIN OPC [Concomitant]
  3. SPIRULINA [Concomitant]
  4. BARLEEN'S GREENS [Concomitant]
  5. JUICE PLUS [Concomitant]
  6. ROYAL TANGU LIMU MOUI [Concomitant]
  7. RM-10 [Concomitant]
  8. ST JOHN'S WORT [Concomitant]
  9. GINKGO BILOBA [Concomitant]
  10. B12 [Concomitant]
  11. VITAMIN B-12 [Concomitant]
  12. ALKALINE GOLD CORAL CALCIUM [Concomitant]
  13. ASSIMILATOR [Concomitant]
  14. NATURAL SBO [Concomitant]
  15. OMEGA 3/60 [Concomitant]
  16. ASCORBIC ACID [Concomitant]
  17. VITAMIN E [Concomitant]
  18. BETA CAROTENE [Concomitant]
  19. MELATONIN [Concomitant]
  20. XANAX [Concomitant]
  21. TYLENOL (CAPLET) [Concomitant]
  22. IBUPROFEN [Concomitant]
  23. VICODIN [Concomitant]
  24. ALEVE [Concomitant]
  25. LORTAB [Concomitant]
  26. LEXAPRO [Concomitant]
  27. QUININE SULFATE [Concomitant]

REACTIONS (4)
  - AMYOTROPHIC LATERAL SCLEROSIS [None]
  - DISEASE PROGRESSION [None]
  - DYSPHAGIA [None]
  - RESPIRATORY FAILURE [None]
